FAERS Safety Report 9114449 (Version 1)
Quarter: 2013Q1

REPORT INFORMATION
  Report Type: Spontaneous
  Country: US (occurrence: US)
  Receive Date: 20130208
  Receipt Date: 20130208
  Transmission Date: 20140127
  Serious: Yes (Hospitalization, Other)
  Sender: FDA-Public Use
  Company Number: US-ELI_LILLY_AND_COMPANY-US201301010653

PATIENT
  Age: 64 Year
  Sex: Male

DRUGS (10)
  1. CIALIS [Suspect]
     Indication: ERECTILE DYSFUNCTION
     Dosage: 20 MG, PRN
     Dates: start: 2010
  2. CIALIS [Suspect]
     Dosage: 1 DF, PRN
  3. LASIX [Concomitant]
     Dosage: 80 MG, EACH MORNING
  4. LASIX [Concomitant]
     Dosage: 40 MG, EACH EVENING
  5. GABAPENTIN [Concomitant]
     Indication: NEUROPATHY PERIPHERAL
     Dosage: 1 DF, TID
  6. DIGOXIN [Concomitant]
  7. SLOW K [Concomitant]
  8. CARBAMAZEPINE [Concomitant]
     Indication: TRIGEMINAL NEURALGIA
     Dosage: 200 MG, BID
  9. METOPROLOL SUCCINATE [Concomitant]
     Dosage: 25 MG, EACH MORNING
  10. METOPROLOL SUCCINATE [Concomitant]
     Dosage: 25 MG, EACH EVENING

REACTIONS (7)
  - Cardiac failure [Unknown]
  - Renal failure [Unknown]
  - Coagulopathy [Unknown]
  - Chest pain [Unknown]
  - Hyperhidrosis [Unknown]
  - Erythema [Unknown]
  - Wrong technique in drug usage process [Unknown]
